FAERS Safety Report 9753855 (Version 1)
Quarter: 2013Q4

REPORT INFORMATION
  Report Type: Spontaneous
  Country: US (occurrence: US)
  Receive Date: 20131213
  Receipt Date: 20131213
  Transmission Date: 20140711
  Serious: No
  Sender: FDA-Public Use
  Company Number: US-GILEAD-2010-0027662

PATIENT
  Sex: Female

DRUGS (8)
  1. LETAIRIS [Suspect]
     Indication: PULMONARY ARTERIAL HYPERTENSION
     Route: 048
     Dates: start: 20100217
  2. OXYGEN [Concomitant]
  3. FUROSEMIDE [Concomitant]
  4. SPIRONOLACTONE [Concomitant]
  5. DIOVAN [Concomitant]
  6. TOPROL XL [Concomitant]
  7. POTASSIUM CHLORIDE [Concomitant]
  8. REVATIO [Concomitant]

REACTIONS (3)
  - Feeling jittery [Unknown]
  - Heart rate increased [Unknown]
  - Headache [Unknown]
